FAERS Safety Report 5467269-6 (Version None)
Quarter: 2007Q3

REPORT INFORMATION
  Report Type: 
  Country: None (occurrence: None)
  Receive Date: 20070820
  Receipt Date: 20070426
  Transmission Date: 20080115
  Serious: No
  Sender: FDA-Public Use
  Company Number: WAES 0704USA06085

PATIENT
  Age: 58 Year
  Sex: Female
  Weight: 73.9363 kg

DRUGS (4)
  1. JANUVIA [Suspect]
     Indication: TYPE 2 DIABETES MELLITUS
     Dosage: 100 MG/ DAILY/ PO; 100 MG/ DAILY/ PO
     Route: 048
     Dates: start: 20070401, end: 20070401
  2. JANUVIA [Suspect]
     Indication: TYPE 2 DIABETES MELLITUS
     Dosage: 100 MG/ DAILY/ PO; 100 MG/ DAILY/ PO
     Route: 048
     Dates: end: 20070401
  3. ACTOS [Concomitant]
  4. METFORMIN HCL [Concomitant]

REACTIONS (1)
  - SINUS CONGESTION [None]
